FAERS Safety Report 8770974 (Version 3)
Quarter: 2012Q4

REPORT INFORMATION
  Report Type: 
  Country: JP (occurrence: JP)
  Receive Date: 20120906
  Receipt Date: 20120927
  Transmission Date: 20130627
  Serious: Yes (Life-Threatening, Hospitalization)
  Sender: FDA-Public Use
  Company Number: JP-ASTRAZENECA-2012SE69371

PATIENT
  Age: 67 Year
  Sex: Male
  Weight: 49 kg

DRUGS (2)
  1. BLOPRESS [Suspect]
     Indication: HYPERTENSION
     Route: 048
     Dates: end: 20120820
  2. NATRIX [Suspect]
     Indication: HYPERTENSION
     Route: 048
     Dates: end: 20120820

REACTIONS (7)
  - Disseminated intravascular coagulation [Recovered/Resolved]
  - Shock [Recovered/Resolved]
  - Hepatic function abnormal [Recovering/Resolving]
  - Hyperlipidaemia [Recovered/Resolved]
  - Dizziness [Unknown]
  - Dizziness postural [Unknown]
  - Renal impairment [Recovering/Resolving]
